FAERS Safety Report 24064320 (Version 1)
Quarter: 2024Q3

REPORT INFORMATION
  Report Type: Spontaneous
  Country: US (occurrence: None)
  Receive Date: 20240708
  Receipt Date: 20240708
  Transmission Date: 20241017
  Serious: Yes (Other)
  Sender: Public
  Company Number: None

PATIENT
  Age: 77 Year
  Sex: Male

DRUGS (1)
  1. ABIRATERONE [Suspect]
     Active Substance: ABIRATERONE
     Dosage: FREQUENCY : DAILY;?

REACTIONS (13)
  - Headache [None]
  - Fatigue [None]
  - Dizziness [None]
  - Hypoaesthesia [None]
  - Urinary incontinence [None]
  - Dyspnoea [None]
  - Pollakiuria [None]
  - Decreased appetite [None]
  - Weight increased [None]
  - Mood swings [None]
  - Muscle spasms [None]
  - Dizziness [None]
  - Diarrhoea [None]
